FAERS Safety Report 21131434 (Version 4)
Quarter: 2022Q3

REPORT INFORMATION
  Report Type: Report from Study
  Country: AU (occurrence: AU)
  Receive Date: 20220726
  Receipt Date: 20220819
  Transmission Date: 20221027
  Serious: Yes (Hospitalization)
  Sender: FDA-Public Use
  Company Number: AU-TAKEDA-2022TUS046380

PATIENT
  Age: 64 Year
  Sex: Male

DRUGS (1)
  1. HUMAN IMMUNOGLOBULIN G [Suspect]
     Active Substance: HUMAN IMMUNOGLOBULIN G
     Indication: Chronic inflammatory demyelinating polyradiculoneuropathy
     Dosage: 8 GRAM, 1/WEEK
     Route: 058
     Dates: start: 20220707

REACTIONS (15)
  - Localised infection [Recovering/Resolving]
  - Limb injury [Recovering/Resolving]
  - Malaise [Unknown]
  - Nausea [Recovering/Resolving]
  - Fatigue [Unknown]
  - Headache [Recovering/Resolving]
  - Dizziness [Recovering/Resolving]
  - Pain in extremity [Recovering/Resolving]
  - Infusion site swelling [Recovering/Resolving]
  - Somnolence [Recovering/Resolving]
  - Head discomfort [Recovering/Resolving]
  - Asthenopia [Recovering/Resolving]
  - Nervous system disorder [Unknown]
  - Off label use [Unknown]
  - Inappropriate schedule of product administration [Unknown]

NARRATIVE: CASE EVENT DATE: 20220727
